FAERS Safety Report 21065423 (Version 3)
Quarter: 2022Q4

REPORT INFORMATION
  Report Type: Report from Study
  Country: CN (occurrence: CN)
  Receive Date: 20220711
  Receipt Date: 20221004
  Transmission Date: 20230112
  Serious: Yes (Hospitalization)
  Sender: FDA-Public Use
  Company Number: CN-NOVARTISPH-NVSC2022CN086799

PATIENT
  Age: 67 Year
  Sex: Male
  Weight: 89 kg

DRUGS (3)
  1. PACLITAXEL [Suspect]
     Active Substance: PACLITAXEL
     Indication: Squamous cell carcinoma
     Dosage: 80 MG, QW
     Route: 042
     Dates: start: 20211118, end: 20220112
  2. DURVALUMAB [Suspect]
     Active Substance: DURVALUMAB
     Indication: Squamous cell carcinoma
     Dosage: NO TREATMENT
     Route: 065
  3. DURVALUMAB [Suspect]
     Active Substance: DURVALUMAB
     Dosage: 900 MG, Q2W
     Route: 065
     Dates: start: 20220207

REACTIONS (1)
  - Pulmonary embolism [Recovered/Resolved]

NARRATIVE: CASE EVENT DATE: 20220112
